FAERS Safety Report 9717487 (Version 2)
Quarter: 2013Q4

REPORT INFORMATION
  Report Type: Spontaneous
  Country: US (occurrence: US)
  Receive Date: 20131127
  Receipt Date: 20131127
  Transmission Date: 20140711
  Serious: No
  Sender: FDA-Public Use
  Company Number: US-GILEAD-2009-0019787

PATIENT
  Age: 81 Year
  Sex: Female
  Weight: 99.79 kg

DRUGS (16)
  1. LETAIRIS [Suspect]
     Indication: PULMONARY ARTERIAL HYPERTENSION
     Route: 048
     Dates: start: 20081128
  2. LASIX [Concomitant]
     Indication: OEDEMA
     Dates: start: 20081113
  3. METOLAZONE [Concomitant]
     Indication: OEDEMA
     Dates: start: 20081113
  4. ISOSORBIDE [Concomitant]
     Dates: start: 20081113
  5. ASPIRIN [Concomitant]
     Dates: start: 20081113
  6. ARANESP [Concomitant]
  7. ROBAXIN [Concomitant]
     Indication: MUSCLE RELAXANT THERAPY
     Dates: start: 20081113
  8. AMBIEN [Concomitant]
     Indication: SLEEP DISORDER
     Dates: start: 20081113
  9. COMPLETE MULTIVITAMIN [Concomitant]
  10. POTASSIUM CHLORIDE [Concomitant]
     Indication: SUPPLEMENTATION THERAPY
     Dates: start: 20081113
  11. BL CALCIUM [Concomitant]
     Dates: start: 20081113
  12. BL FISH OIL CONCENTRATE [Concomitant]
  13. BL VITAMIN B-12 [Concomitant]
  14. CORE PLUS [Concomitant]
     Dates: start: 20081113
  15. RIBOFLAVIN [Concomitant]
  16. VITAMIN D [Concomitant]
     Dates: start: 20081113

REACTIONS (4)
  - Glossodynia [Recovered/Resolved]
  - Nasal congestion [Not Recovered/Not Resolved]
  - Weight increased [Recovered/Resolved]
  - Oedema peripheral [Not Recovered/Not Resolved]
